FAERS Safety Report 5844670-X (Version None)
Quarter: 2008Q3

REPORT INFORMATION
  Report Type: 
  Country: None (occurrence: None)
  Receive Date: 20080812
  Receipt Date: 20080806
  Transmission Date: 20090109
  Serious: Yes (Death, Hospitalization)
  Sender: FDA-Public Use
  Company Number: 2008-181715-NL

PATIENT
  Age: 21 Month
  Sex: Male

DRUGS (4)
  1. DEXAMETHASONE TAB [Suspect]
     Dosage: ORAL
     Route: 048
  2. ASPARAGINASE [Suspect]
     Indication: ACUTE LYMPHOCYTIC LEUKAEMIA
     Dosage: DF
  3. DOXORUBICIN HCL [Suspect]
     Indication: ACUTE LYMPHOCYTIC LEUKAEMIA
     Dosage: 25 MG/M2 BW
  4. VINCRISTINE [Suspect]
     Indication: ACUTE LYMPHOCYTIC LEUKAEMIA
     Dosage: 1.5 MG/M2 BW

REACTIONS (14)
  - ADENOVIRAL HEPATITIS [None]
  - BRONCHIOLITIS [None]
  - CENTRAL LINE INFECTION [None]
  - COAGULOPATHY [None]
  - CULTURE POSITIVE [None]
  - DEPRESSED LEVEL OF CONSCIOUSNESS [None]
  - GENERAL PHYSICAL HEALTH DETERIORATION [None]
  - HEPATIC ENCEPHALOPATHY [None]
  - ORAL HERPES [None]
  - PARAINFLUENZAE VIRUS INFECTION [None]
  - PATHOGEN RESISTANCE [None]
  - PSEUDOMONAS INFECTION [None]
  - RENAL IMPAIRMENT [None]
  - STAPHYLOCOCCAL INFECTION [None]
